FAERS Safety Report 6732001-2 (Version None)
Quarter: 2010Q2

REPORT INFORMATION
  Report Type: 
  Country: None (occurrence: None)
  Receive Date: 20100519
  Receipt Date: 20100507
  Transmission Date: 20101027
  Serious: Yes (Other)
  Sender: FDA-Public Use
  Company Number: PHHY2010AU29605

PATIENT
  Sex: Female

DRUGS (2)
  1. ZADITEN [Suspect]
     Indication: EYE PAIN
     Dosage: UNK
     Dates: start: 20100430
  2. ZADITEN [Suspect]
     Dosage: UNK
     Dates: start: 20100501

REACTIONS (3)
  - ASTHMA [None]
  - DYSPNOEA [None]
  - SOMNOLENCE [None]
